FAERS Safety Report 23257657 (Version 1)
Quarter: 2023Q4

REPORT INFORMATION
  Report Type: Spontaneous
  Country: US (occurrence: None)
  Receive Date: 20231128
  Receipt Date: 20231128
  Transmission Date: 20240110
  Serious: No
  Sender: FDA-Public Use
  Company Number: None

PATIENT
  Age: 64 Year
  Sex: Female

DRUGS (1)
  1. DRAMAMINE CHEWABLE FORMULA [Suspect]
     Active Substance: DIMENHYDRINATE
     Indication: Motion sickness
     Dosage: OTHER QUANTITY : 10 2 CHEWS;?FREQUENCY : EVERY 6 HOURS;?
     Route: 048

REACTIONS (2)
  - Product use complaint [None]
  - Product label issue [None]

NARRATIVE: CASE EVENT DATE: 20231128
